FAERS Safety Report 14835485 (Version 1)
Quarter: 2018Q2

REPORT INFORMATION
  Report Type: Spontaneous
  Country: PL (occurrence: PL)
  Receive Date: 20180502
  Receipt Date: 20180502
  Transmission Date: 20180711
  Serious: Yes (Other)
  Sender: FDA-Public Use
  Company Number: PL-BRISTOL-MYERS SQUIBB COMPANY-BMS-2018-022332

PATIENT
  Age: 80 Year
  Sex: Male

DRUGS (1)
  1. ELIQUIS [Suspect]
     Active Substance: APIXABAN
     Indication: CEREBROVASCULAR ACCIDENT PROPHYLAXIS
     Dosage: 2.5 MG, QD
     Route: 065
     Dates: start: 201704

REACTIONS (4)
  - Neuropathy peripheral [Unknown]
  - Visual acuity reduced [Unknown]
  - Off label use [Unknown]
  - Macular degeneration [Unknown]

NARRATIVE: CASE EVENT DATE: 2017
